FAERS Safety Report 21036103 (Version 1)
Quarter: 2022Q3

REPORT INFORMATION
  Report Type: Spontaneous
  Country: US (occurrence: US)
  Receive Date: 20220701
  Receipt Date: 20220701
  Transmission Date: 20221027
  Serious: No
  Sender: FDA-Public Use
  Company Number: US-THERAPEUTICSMD-2022TMD00235

PATIENT
  Age: 60 Year
  Sex: Female
  Weight: 71.655 kg

DRUGS (1)
  1. IMVEXXY [Suspect]
     Active Substance: ESTRADIOL
     Indication: Atrophic vulvovaginitis
     Dosage: 10 ?G, 2X/WEEK
     Route: 067
     Dates: start: 20220203, end: 202202

REACTIONS (4)
  - Abdominal pain upper [Recovering/Resolving]
  - Off label use [Recovered/Resolved]
  - Breast pain [Recovering/Resolving]
  - Headache [Recovering/Resolving]

NARRATIVE: CASE EVENT DATE: 20220203
